FAERS Safety Report 22795093 (Version 3)
Quarter: 2023Q4

REPORT INFORMATION
  Report Type: Spontaneous
  Country: US (occurrence: US)
  Receive Date: 20230807
  Receipt Date: 20231010
  Transmission Date: 20240110
  Serious: Yes (Hospitalization)
  Sender: FDA-Public Use
  Company Number: US-SA-SAC20230804000163

PATIENT
  Age: 15 Year
  Sex: Male

DRUGS (6)
  1. ALPROLIX [Suspect]
     Active Substance: EFTRENONACOG ALFA
     Indication: Factor IX deficiency
     Dosage: 3300 U (2970-3630), QW FOR MILD BLEED
     Route: 042
     Dates: start: 202003
  2. ALPROLIX [Suspect]
     Active Substance: EFTRENONACOG ALFA
     Indication: Factor IX deficiency
     Dosage: 3300 U (2970-3630), QW FOR MILD BLEED
     Route: 042
     Dates: start: 202003
  3. ALPROLIX [Suspect]
     Active Substance: EFTRENONACOG ALFA
     Dosage: 3300 U (2970-3630), EVERY 48 HOURS AS PRN FOR MILD BLEED
     Route: 042
     Dates: start: 202003
  4. ALPROLIX [Suspect]
     Active Substance: EFTRENONACOG ALFA
     Dosage: 3300 U (2970-3630), EVERY 48 HOURS AS PRN FOR MILD BLEED
     Route: 042
     Dates: start: 202003
  5. ALPROLIX [Suspect]
     Active Substance: EFTRENONACOG ALFA
     Dosage: 6600 U (5940-7260) FOR MAJOR BLEED EVERY 24 HOURS PRN
     Route: 042
     Dates: start: 202003
  6. ALPROLIX [Suspect]
     Active Substance: EFTRENONACOG ALFA
     Dosage: 6600 U (5940-7260) FOR MAJOR BLEED EVERY 24 HOURS PRN
     Route: 042
     Dates: start: 202003

REACTIONS (4)
  - Abdominal pain [Unknown]
  - Blood urine present [Recovered/Resolved]
  - Epistaxis [Recovering/Resolving]
  - Drug ineffective [Unknown]

NARRATIVE: CASE EVENT DATE: 20230101
